FAERS Safety Report 9463852 (Version 2)
Quarter: 2013Q3

REPORT INFORMATION
  Report Type: Report from Study
  Country: AU (occurrence: AU)
  Receive Date: 20130819
  Receipt Date: 20130829
  Transmission Date: 20140515
  Serious: Yes (Hospitalization)
  Sender: FDA-Public Use
  Company Number: AU-MPIJNJ-2013-05984

PATIENT
  Sex: 0

DRUGS (31)
  1. VELCADE [Suspect]
     Indication: PLASMA CELL MYELOMA
     Dosage: 2.4 MG, UNK
     Route: 065
     Dates: start: 20120703, end: 20120824
  2. CYCLOPHOSPHAMIDE [Suspect]
     Indication: PLASMA CELL MYELOMA
     Dosage: 550 MG, UNK
     Route: 065
     Dates: start: 20120703, end: 20120828
  3. ENDEP [Concomitant]
     Indication: FIBROMYALGIA
  4. VITAMIN B COMPLEX                  /00003501/ [Concomitant]
  5. VITAMIN C                          /00008001/ [Concomitant]
  6. VITAMIN E                          /00110501/ [Concomitant]
  7. GARLIC                             /01570501/ [Concomitant]
  8. MAGNESIUM [Concomitant]
  9. SALBUTAMOL [Concomitant]
     Indication: ASTHMA
  10. PROCHLORPERAZINE [Concomitant]
     Indication: MENIERE^S DISEASE
  11. PARACETAMOL [Concomitant]
     Indication: BACK PAIN
  12. PARACETAMOL [Concomitant]
     Indication: BACK PAIN
  13. KEFLEX                             /00145501/ [Concomitant]
  14. BONEFOS [Concomitant]
  15. VALTREX [Concomitant]
  16. ZOLEDRONIC ACID [Concomitant]
  17. FENTANYL [Concomitant]
  18. MIDAZOLAM [Concomitant]
  19. ALLOPURINOL [Concomitant]
  20. SODIUM BICARBONATE [Concomitant]
  21. BACTRIM [Concomitant]
  22. OMEPRAZOLE [Concomitant]
  23. ZOMETA [Concomitant]
  24. GENTAMYCIN-MP [Concomitant]
  25. STEMETIL                           /00013301/ [Concomitant]
  26. FILGRASTIM [Concomitant]
  27. CEFTAZIDIME [Concomitant]
  28. FLAGYL                             /00012501/ [Concomitant]
  29. XYLOCAINE                          /00033401/ [Concomitant]
  30. DOMPERIDONE [Concomitant]
  31. METRONIDAZOLE [Concomitant]

REACTIONS (3)
  - Mucosal inflammation [Recovered/Resolved]
  - Pyrexia [Recovered/Resolved]
  - Febrile neutropenia [Recovered/Resolved]
